FAERS Safety Report 14641255 (Version 4)
Quarter: 2018Q2

REPORT INFORMATION
  Report Type: Spontaneous
  Country: CA (occurrence: CA)
  Receive Date: 20180315
  Receipt Date: 20180511
  Transmission Date: 20180711
  Serious: Yes (Other)
  Sender: FDA-Public Use
  Company Number: CA-CELLTRION INC.-2018CA018574

PATIENT

DRUGS (12)
  1. PREDNISONE. [Concomitant]
     Active Substance: PREDNISONE
     Dosage: UNK
  2. METOPROLOL. [Concomitant]
     Active Substance: METOPROLOL
     Dosage: UNK
  3. ROSUVASTATIN. [Concomitant]
     Active Substance: ROSUVASTATIN
     Dosage: UNK
  4. INFLECTRA [Suspect]
     Active Substance: INFLIXIMAB-DYYB
     Dosage: 5 MG/KG, CYCLIC, EVERY 0,2,6 WEEKS THEN EVERY 8 WEEKS
     Route: 042
     Dates: start: 20180317, end: 20180317
  5. NITRO                              /00003201/ [Concomitant]
     Active Substance: NITROGLYCERIN
     Dosage: UNK
  6. FUMARIC ACID [Concomitant]
     Active Substance: FUMARIC ACID
     Dosage: UNK
  7. IRBESARTAN. [Concomitant]
     Active Substance: IRBESARTAN
     Dosage: UNK
  8. INFLECTRA [Suspect]
     Active Substance: INFLIXIMAB-DYYB
     Dosage: 5 MG/KG, CYCLIC, EVERY 0,2,6 WEEKS THEN EVERY 8 WEEKS
     Route: 042
     Dates: start: 20180306
  9. INFLECTRA [Suspect]
     Active Substance: INFLIXIMAB-DYYB
     Indication: CROHN^S DISEASE
     Dosage: 5 MG/KG, CYCLIC, EVERY 0,2,6 WEEKS THEN EVERY 8 WEEKS
     Route: 042
     Dates: start: 20180220
  10. MICARDIS [Concomitant]
     Active Substance: TELMISARTAN
     Dosage: UNK
  11. PROCTOSOL [Concomitant]
     Dosage: UNK
  12. PANTOPRAZOLE [Concomitant]
     Active Substance: PANTOPRAZOLE
     Dosage: UNK

REACTIONS (15)
  - Skin plaque [Recovered/Resolved]
  - Influenza like illness [Unknown]
  - Musculoskeletal stiffness [Unknown]
  - Rash [Recovered/Resolved]
  - Nasopharyngitis [Unknown]
  - Headache [Not Recovered/Not Resolved]
  - Body temperature increased [Unknown]
  - Inappropriate schedule of drug administration [Unknown]
  - Nasal discomfort [Unknown]
  - Haematochezia [Not Recovered/Not Resolved]
  - Gastrointestinal disorder [Unknown]
  - Cough [Unknown]
  - Fatigue [Unknown]
  - Drug effect incomplete [Unknown]
  - Dyspnoea [Unknown]
